FAERS Safety Report 6643865-5 (Version None)
Quarter: 2010Q1

REPORT INFORMATION
  Report Type: 
  Country: None (occurrence: None)
  Receive Date: 20100317
  Receipt Date: 20100308
  Transmission Date: 20100710
  Serious: Yes (Other)
  Sender: FDA-Public Use
  Company Number: 2010JP001479

PATIENT
  Age: 84 Year
  Sex: Male

DRUGS (9)
  1. PROGRAF [Suspect]
     Indication: RHEUMATOID ARTHRITIS
     Dosage: 1 MG, ORAL
     Route: 048
     Dates: start: 20091019, end: 20100301
  2. METHOTREXATE [Concomitant]
  3. URSO 250 [Concomitant]
  4. VERAPAMIL HYDROCHLORIDE [Concomitant]
  5. EURODIN (ESTAZOLAM) [Concomitant]
  6. MUCOSTA (REBAMIPIDE) [Concomitant]
  7. DIOVAN [Suspect]
  8. NORVASC [Suspect]
     Dosage: UNKNONW
  9. FLUITRAN (TRICHLORMETHIAZIDE) [Suspect]
     Dosage: UNKNOWN

REACTIONS (1)
  - GAIT DISTURBANCE [None]
